FAERS Safety Report 15820643 (Version 1)
Quarter: 2019Q1

REPORT INFORMATION
  Report Type: Spontaneous
  Country: AU (occurrence: AU)
  Receive Date: 20190114
  Receipt Date: 20190114
  Transmission Date: 20190417
  Serious: Yes (Hospitalization)
  Sender: FDA-Public Use
  Company Number: AU-ACTELION-A-CH2017-156467

PATIENT
  Age: 70 Year
  Sex: Female

DRUGS (3)
  1. OPSUMIT [Suspect]
     Active Substance: MACITENTAN
     Indication: PULMONARY HYPERTENSION
     Dosage: 10 MG, QD
     Route: 048
     Dates: start: 20160113
  2. SILDENAFIL. [Suspect]
     Active Substance: SILDENAFIL
     Dosage: 25 MG, TID
     Route: 048
  3. SILDENAFIL. [Suspect]
     Active Substance: SILDENAFIL
     Indication: PULMONARY HYPERTENSION
     Dosage: 75 MG, TID
     Route: 048
     Dates: start: 20160407

REACTIONS (10)
  - Vertigo [Unknown]
  - Oedema peripheral [Unknown]
  - Dyspnoea [Unknown]
  - Palpitations [Unknown]
  - Body temperature increased [Unknown]
  - Oxygen saturation decreased [Unknown]
  - Crepitations [Unknown]
  - Dizziness postural [Unknown]
  - Pneumonia [Unknown]
  - Iron deficiency [Unknown]

NARRATIVE: CASE EVENT DATE: 201705
